FAERS Safety Report 8160355-1 (Version None)
Quarter: 2012Q1

REPORT INFORMATION
  Report Type: 
  Country: None (occurrence: None)
  Receive Date: 20120223
  Receipt Date: 20120220
  Transmission Date: 20120608
  Serious: Yes (Other)
  Sender: FDA-Public Use
  Company Number: JP-EISAI INC-E2090-02005-SPO-JP

PATIENT
  Age: 66 Year
  Sex: Male

DRUGS (1)
  1. ZONISAMIDE [Suspect]
     Route: 048
     Dates: start: 20100901, end: 20101101

REACTIONS (1)
  - TOXIC EPIDERMAL NECROLYSIS [None]
